FAERS Safety Report 7931390-0 (Version None)
Quarter: 2011Q4

REPORT INFORMATION
  Report Type: 
  Country: None (occurrence: None)
  Receive Date: 20111121
  Receipt Date: 20111110
  Transmission Date: 20120403
  Serious: Yes (Other)
  Sender: FDA-Public Use
  Company Number: GB-JNJFOC-20111104520

PATIENT
  Age: 71 Year
  Sex: Male

DRUGS (2)
  1. AZATHIOPRINE [Concomitant]
  2. INFLIXIMAB, RECOMBINANT [Suspect]
     Indication: RHEUMATOID ARTHRITIS
     Route: 065
     Dates: start: 20030623

REACTIONS (1)
  - TYPE 2 DIABETES MELLITUS [None]
